FAERS Safety Report 10141110 (Version 1)
Quarter: 2014Q2

REPORT INFORMATION
  Report Type: Spontaneous
  Country: US (occurrence: US)
  Receive Date: 20140429
  Receipt Date: 20140429
  Transmission Date: 20141212
  Serious: Yes (Hospitalization)
  Sender: FDA-Public Use
  Company Number: US-ELI_LILLY_AND_COMPANY-US201404007214

PATIENT
  Sex: Male

DRUGS (11)
  1. HUMALOG LISPRO [Suspect]
     Indication: DIABETES MELLITUS
     Dosage: UNK UNK, PRN
     Route: 065
  2. HUMALOG LISPRO [Suspect]
     Dosage: 30 U, PRN
  3. LANTUS [Concomitant]
  4. LOVAZA [Concomitant]
  5. METFORMIN [Concomitant]
  6. CRESTOR [Concomitant]
  7. TERAZOSIN [Concomitant]
  8. CITALOPRAM [Concomitant]
  9. MELOXICAM [Concomitant]
  10. DEPAKOTE [Concomitant]
  11. CELEXA                             /00582602/ [Concomitant]

REACTIONS (6)
  - Transient ischaemic attack [Unknown]
  - Sensory loss [Unknown]
  - Upper limb fracture [Unknown]
  - Rotator cuff syndrome [Unknown]
  - Hypoglycaemia [Unknown]
  - Incorrect dose administered [Unknown]
